FAERS Safety Report 8538192-5 (Version None)
Quarter: 2012Q3

REPORT INFORMATION
  Report Type: 
  Country: None (occurrence: None)
  Receive Date: 20120726
  Receipt Date: 20120702
  Transmission Date: 20120928
  Serious: No
  Sender: FDA-Public Use
  Company Number: US-009507513-2012SP030921

PATIENT

DRUGS (1)
  1. NASONEX [Suspect]
     Indication: SEASONAL ALLERGY
     Dosage: 1 SPRAY IN EACH NOSTRIL ONCE DAILY
     Route: 045
     Dates: start: 20120517

REACTIONS (3)
  - NASAL CONGESTION [None]
  - COUGH [None]
  - DRUG DOSE OMISSION [None]
